FAERS Safety Report 8624940-2 (Version None)
Quarter: 2012Q3

REPORT INFORMATION
  Report Type: 
  Country: None (occurrence: None)
  Receive Date: 20120827
  Receipt Date: 20120827
  Transmission Date: 20120928
  Serious: Yes (Other)
  Sender: FDA-Public Use
  Company Number: US-PFIZER INC-2012204634

PATIENT
  Age: 76 Year
  Sex: Female
  Weight: 68.027 kg

DRUGS (3)
  1. ATORVASTATIN CALCIUM [Suspect]
     Indication: BLOOD CHOLESTEROL ABNORMAL
     Dosage: 20 MG, DAILY
     Dates: start: 20110101, end: 20120101
  2. LIPITOR [Suspect]
     Dosage: 20 MG, DAILY
     Dates: start: 20120101
  3. LIPITOR [Suspect]
     Indication: BLOOD CHOLESTEROL ABNORMAL
     Dosage: 20 MG, DAILY
     Route: 048
     Dates: start: 20040101, end: 20110101

REACTIONS (4)
  - ABDOMINAL PAIN UPPER [None]
  - DRUG INTOLERANCE [None]
  - MALAISE [None]
  - CATARACT [None]
